FAERS Safety Report 20233152 (Version 1)
Quarter: 2021Q4

REPORT INFORMATION
  Report Type: Spontaneous
  Country: CO (occurrence: CO)
  Receive Date: 20211227
  Receipt Date: 20211227
  Transmission Date: 20220303
  Serious: Yes (Hospitalization, Other)
  Sender: FDA-Public Use
  Company Number: CO-AMGEN-COLSP2021203825

PATIENT
  Age: 63 Year
  Sex: Female
  Weight: 47 kg

DRUGS (2)
  1. MVASI [Suspect]
     Active Substance: BEVACIZUMAB-AWWB
     Indication: Brain neoplasm malignant
     Dosage: 500 MILLIGRAM
     Route: 042
  2. CYCLOPHOSPHAMIDE [Concomitant]
     Active Substance: CYCLOPHOSPHAMIDE
     Indication: Brain neoplasm malignant
     Dosage: 150 MILLIGRAM
     Route: 048

REACTIONS (5)
  - Ascites [Unknown]
  - Abdominal pain [Not Recovered/Not Resolved]
  - Disease recurrence [Unknown]
  - Off label use [Unknown]
  - Effusion [Unknown]

NARRATIVE: CASE EVENT DATE: 20210511
